FAERS Safety Report 23374983 (Version 1)
Quarter: 2024Q1

REPORT INFORMATION
  Report Type: Spontaneous
  Country: FR (occurrence: FR)
  Receive Date: 20240106
  Receipt Date: 20240106
  Transmission Date: 20240410
  Serious: Yes (Other)
  Sender: FDA-Public Use
  Company Number: FR-AFSSAPS-BR2023001051

PATIENT
  Age: 39 Year
  Sex: Male

DRUGS (5)
  1. VENLAFAXINE [Suspect]
     Active Substance: VENLAFAXINE HYDROCHLORIDE
     Indication: Mixed anxiety and depressive disorder
     Dosage: 75 MILLIGRAM, TWO TIMES A DAY
     Route: 048
  2. ZOPICLONE [Suspect]
     Active Substance: ZOPICLONE
     Indication: Product used for unknown indication
     Dosage: 1 DOSAGE FORM, ONCE A DAY
     Route: 048
     Dates: end: 20231106
  3. CYAMEMAZINE [Suspect]
     Active Substance: CYAMEMAZINE
     Indication: Product used for unknown indication
     Dosage: 25 MILLIGRAM, ONCE A DAY
     Route: 048
     Dates: end: 202309
  4. LEVOMEPROMAZINE [Suspect]
     Active Substance: LEVOMEPROMAZINE
     Indication: Product used for unknown indication
     Dosage: UNK
     Route: 048
     Dates: start: 202309, end: 20231106
  5. VALIUM [Suspect]
     Active Substance: DIAZEPAM
     Indication: Alcohol withdrawal syndrome
     Dosage: 10 MILLIGRAM, FOUR TIMES/DAY
     Route: 048
     Dates: end: 20231106

REACTIONS (2)
  - Cholestasis [Recovering/Resolving]
  - Hepatic cytolysis [Recovered/Resolved]

NARRATIVE: CASE EVENT DATE: 20230619
